FAERS Safety Report 22956206 (Version 3)
Quarter: 2023Q4

REPORT INFORMATION
  Report Type: Report from Study
  Country: US (occurrence: US)
  Receive Date: 20230919
  Receipt Date: 20231031
  Transmission Date: 20240110
  Serious: Yes (Hospitalization, Other)
  Sender: FDA-Public Use
  Company Number: US-GILEAD-2023-0641059

PATIENT
  Age: 71 Year
  Sex: Male

DRUGS (2)
  1. SACITUZUMAB GOVITECAN-HZIY [Suspect]
     Active Substance: SACITUZUMAB GOVITECAN-HZIY
     Indication: Small cell lung cancer
     Dosage: 823 MG, DAYS (D) 1 AND 8 OF 28-DAY CYCLE
     Route: 042
     Dates: start: 20230726, end: 20230803
  2. BERZOSERTIB [Suspect]
     Active Substance: BERZOSERTIB
     Indication: Small cell lung cancer
     Dosage: 410 MG, D2 AND 9 OF 21-DAY CYCLE
     Route: 042
     Dates: start: 20230727, end: 20230803

REACTIONS (2)
  - Pericarditis [Unknown]
  - Atrial fibrillation [Unknown]

NARRATIVE: CASE EVENT DATE: 20230819
